FAERS Safety Report 23878747 (Version 1)
Quarter: 2024Q2

REPORT INFORMATION
  Report Type: Spontaneous
  Country: GB (occurrence: GB)
  Receive Date: 20240521
  Receipt Date: 20240521
  Transmission Date: 20240716
  Serious: Yes (Other)
  Sender: FDA-Public Use
  Company Number: None

PATIENT
  Age: 85 Year
  Sex: Female
  Weight: 73 kg

DRUGS (17)
  1. CLARITHROMYCIN [Suspect]
     Active Substance: CLARITHROMYCIN
     Indication: Product used for unknown indication
     Dosage: 500 MILLIGRAM, BID
     Route: 048
     Dates: start: 20240507
  2. ASPIRIN [Concomitant]
     Active Substance: ASPIRIN
     Dosage: 1 DOSAGE FORM, QD
     Route: 048
     Dates: start: 20230227
  3. ATORVASTATIN [Concomitant]
     Active Substance: ATORVASTATIN
     Dosage: 1 DOSAGE FORM, QD
     Route: 048
     Dates: start: 20230227
  4. BETAMETHASONE VALERATE [Concomitant]
     Active Substance: BETAMETHASONE VALERATE
     Dosage: 1 DOSAGE FORM, QD (IN THE MORNING)
     Route: 061
     Dates: start: 20230721
  5. BUMETANIDE [Concomitant]
     Active Substance: BUMETANIDE
     Dosage: 1 DOSAGE FORM, QD (EACH MORNING)
     Route: 048
     Dates: start: 20240318
  6. COLCHICINE [Concomitant]
     Active Substance: COLCHICINE
     Dosage: 1 DOSAGE FORM, BID
     Route: 048
     Dates: start: 20231027, end: 20240507
  7. DOXYCYCLINE [Concomitant]
     Active Substance: DOXYCYCLINE
     Dosage: UNK, (TWO NOW THEN ONE DAILY)
     Route: 048
     Dates: start: 20240307, end: 20240312
  8. ERYTHROMYCIN [Concomitant]
     Active Substance: ERYTHROMYCIN
     Dosage: 1 DOSAGE FORM, QID (TAKE ONE 4 TIMES/DAY)
     Route: 048
     Dates: start: 20240510
  9. FOLIC ACID [Concomitant]
     Active Substance: FOLIC ACID
     Dosage: 1 DOSAGE FORM, CYCLE
     Route: 048
     Dates: start: 20240129
  10. FUROSEMIDE [Concomitant]
     Active Substance: FUROSEMIDE
     Dosage: 1 DOSAGE FORM, QD (EACH MORNING)
     Route: 048
     Dates: start: 20240307, end: 20240404
  11. Hydromol [Concomitant]
     Dosage: 1 DOSAGE FORM, QD (FOR USE ON FACE)
     Route: 061
     Dates: start: 20230330
  12. HYPROMELLOSES [Concomitant]
     Active Substance: HYPROMELLOSES
     Dosage: 1 DOSAGE FORM, BID
     Route: 065
     Dates: start: 20230908
  13. LOSARTAN [Concomitant]
     Active Substance: LOSARTAN
     Dosage: 1 DOSAGE FORM, QD
     Route: 048
     Dates: start: 20230227
  14. METHOTREXATE [Concomitant]
     Active Substance: METHOTREXATE
     Dosage: 20 MILLIGRAM, QW
     Route: 048
     Dates: start: 20230227
  15. MOMETASONE [Concomitant]
     Active Substance: MOMETASONE
     Dosage: 1 DOSAGE FORM, BID (BOTH NOSTRILS)
     Route: 045
     Dates: start: 20230526
  16. OTOMIZE [Concomitant]
     Dosage: 1 DOSAGE FORM, TID (IN AFFECTED EAR)
     Route: 001
     Dates: start: 20240507
  17. SEBCO [Concomitant]
     Dosage: 1 DOSAGE FORM, QD (IN THE EVENING)
     Route: 061
     Dates: start: 20230721

REACTIONS (1)
  - Oral mucosal blistering [Recovering/Resolving]
